FAERS Safety Report 4336650-0 (Version None)
Quarter: 2004Q2

REPORT INFORMATION
  Report Type: 
  Country: None (occurrence: None)
  Receive Date: 20040412
  Receipt Date: 20030411
  Transmission Date: 20050107
  Serious: Yes (Death, Other)
  Sender: FDA-Public Use
  Company Number: US-MERCK-0304USA01429

PATIENT
  Age: 62 Year
  Sex: Female
  Weight: 100 kg

DRUGS (6)
  1. [THERAPY UNSPECIFIED] [Concomitant]
     Indication: PAIN
     Route: 065
     Dates: start: 20000201, end: 20010401
  2. NORVASC [Concomitant]
     Route: 065
     Dates: start: 19970109, end: 20010406
  3. PREMARIN [Concomitant]
     Route: 065
     Dates: start: 20000918, end: 20010406
  4. DYAZIDE [Concomitant]
     Indication: HYPERTENSION
     Route: 065
     Dates: start: 20000327
  5. SULAR [Concomitant]
     Route: 065
  6. VIOXX [Suspect]
     Indication: ARTHROPATHY
     Route: 048
     Dates: start: 20001113, end: 20010407

REACTIONS (9)
  - ARTHROPATHY [None]
  - DERMAL CYST [None]
  - HEADACHE [None]
  - INJURY [None]
  - INSOMNIA [None]
  - MYALGIA [None]
  - PAIN IN EXTREMITY [None]
  - PULMONARY EMBOLISM [None]
  - SUDDEN DEATH [None]
